FAERS Safety Report 10079201 (Version 1)
Quarter: 2014Q2

REPORT INFORMATION
  Report Type: Spontaneous
  Country: US (occurrence: None)
  Receive Date: 20140414
  Receipt Date: 20140414
  Transmission Date: 20141212
  Serious: Yes (Death)
  Sender: FDA-Public Use
  Company Number: None

PATIENT
  Age: 61 Year
  Sex: Male
  Weight: 115 kg

DRUGS (1)
  1. AMBIEN [Suspect]
     Indication: INSOMNIA

REACTIONS (5)
  - Skull fracture [None]
  - Cerebral haemorrhage [None]
  - Somnambulism [None]
  - Sleep-related eating disorder [None]
  - Fall [None]
